FAERS Safety Report 10420843 (Version 2)
Quarter: 2014Q4

REPORT INFORMATION
  Report Type: Spontaneous
  Country: US (occurrence: None)
  Receive Date: 20140714
  Receipt Date: 20141015
  Transmission Date: 20150528
  Serious: Yes (Hospitalization, Other)
  Sender: FDA-Public Use
  Company Number: 2014US003290

PATIENT
  Sex: Female

DRUGS (1)
  1. ICLUSIG [Suspect]
     Active Substance: PONATINIB
     Indication: GENE MUTATION
     Route: 048

REACTIONS (4)
  - Hospitalisation [None]
  - White blood cell count decreased [None]
  - Bone marrow failure [None]
  - Platelet count abnormal [None]

NARRATIVE: CASE EVENT DATE: 201405
